FAERS Safety Report 10733777 (Version 4)
Quarter: 2015Q2

REPORT INFORMATION
  Report Type: Report from Study
  Country: BE (occurrence: BE)
  Receive Date: 20150123
  Receipt Date: 20150625
  Transmission Date: 20150821
  Serious: Yes (Hospitalization)
  Sender: FDA-Public Use
  Company Number: BE-ABBVIE-14P-013-1254087-00

PATIENT
  Sex: Female

DRUGS (9)
  1. DUODOPA [Suspect]
     Active Substance: CARBIDOPA\LEVODOPA
     Indication: PARKINSON^S DISEASE
     Dosage: AM DOSE= 5ML, CONTIN DOSE= 2.3ML/H DURING 16HRS, EXTRA DOSE= 1.5ML
     Route: 050
     Dates: start: 20120109, end: 20120113
  2. DUODOPA [Suspect]
     Active Substance: CARBIDOPA\LEVODOPA
     Dosage: DOSAGE CONTINUOUSLY MONITORED AND ADJUSTED
     Route: 050
     Dates: start: 20120113, end: 20140529
  3. DUODOPA [Suspect]
     Active Substance: CARBIDOPA\LEVODOPA
     Dosage: AM: 4ML; CD: 1ML/H FOR 16 HRS; ED: 1ML
     Route: 050
     Dates: start: 20150618
  4. DUODOPA [Suspect]
     Active Substance: CARBIDOPA\LEVODOPA
     Dosage: DOSAGE CONTINUOUSLY MONITORED AND ADJUSTED
     Route: 050
     Dates: start: 20150107, end: 20150403
  5. DUODOPA [Suspect]
     Active Substance: CARBIDOPA\LEVODOPA
     Dosage: AM: 5ML; CD: 1ML/H FOR 16 HRS; ED: 1ML
     Route: 050
     Dates: start: 20150526, end: 20150618
  6. DUODOPA [Suspect]
     Active Substance: CARBIDOPA\LEVODOPA
     Route: 050
     Dates: start: 20150403, end: 20150526
  7. DUODOPA [Suspect]
     Active Substance: CARBIDOPA\LEVODOPA
     Dosage: AM DOSE=5ML, CD=1.3ML/H FOR 16HRS AND ED=1ML
     Route: 050
     Dates: start: 20150403, end: 20150526
  8. DUODOPA [Suspect]
     Active Substance: CARBIDOPA\LEVODOPA
     Dosage: AM DOSE= 5ML, CONTIN DOSE= 2.3ML/H DURING 16HRS, EXTRA DOSE= 1ML
     Route: 050
     Dates: start: 20140529, end: 20140703
  9. DUODOPA [Suspect]
     Active Substance: CARBIDOPA\LEVODOPA
     Dosage: AM DOSE= 5ML, CONTIN DOSE= 1.7ML/H DURING 16HRS, EXTRA DOSE= 1ML
     Route: 050
     Dates: start: 20140703, end: 20150107

REACTIONS (6)
  - Hypoaesthesia [Not Recovered/Not Resolved]
  - Peripheral sensory neuropathy [Not Recovered/Not Resolved]
  - Electroencephalogram abnormal [Unknown]
  - Paraesthesia [Unknown]
  - Hypoaesthesia [Recovering/Resolving]
  - Hypoaesthesia [Unknown]
